FAERS Safety Report 15395193 (Version 1)
Quarter: 2018Q3

REPORT INFORMATION
  Report Type: Spontaneous
  Country: US (occurrence: US)
  Receive Date: 20180918
  Receipt Date: 20180918
  Transmission Date: 20181010
  Serious: No
  Sender: FDA-Public Use
  Company Number: US-PFIZER INC-2018373225

PATIENT
  Age: 48 Year
  Sex: Female
  Weight: 83.1 kg

DRUGS (2)
  1. OMEPRAZOLE. [Concomitant]
     Active Substance: OMEPRAZOLE
     Indication: ULCER
     Dosage: 40 MG, 2X/DAY
     Route: 048
  2. CHANTIX [Suspect]
     Active Substance: VARENICLINE TARTRATE
     Indication: SMOKING CESSATION THERAPY
     Dosage: 1 MG, 2X/DAY
     Route: 048
     Dates: start: 201807

REACTIONS (5)
  - Accident at work [Unknown]
  - Arthropathy [Unknown]
  - Drug dose omission [Unknown]
  - Intervertebral disc protrusion [Unknown]
  - Fall [Unknown]

NARRATIVE: CASE EVENT DATE: 20180730
